FAERS Safety Report 14952955 (Version 6)
Quarter: 2018Q3

REPORT INFORMATION
  Report Type: Spontaneous
  Country: CO (occurrence: CO)
  Receive Date: 20180530
  Receipt Date: 20180714
  Transmission Date: 20181010
  Serious: Yes (Death, Life-Threatening, Disabling, Other)
  Sender: FDA-Public Use
  Company Number: CO-AMGEN-COLSP2018072272

PATIENT
  Age: 20 Year
  Sex: Female
  Weight: 64.1 kg

DRUGS (3)
  1. BLINCYTO [Suspect]
     Active Substance: BLINATUMOMAB
     Dosage: 28 MCG, (DAY 8 TO 28)
     Route: 042
     Dates: start: 20180509, end: 20180529
  2. BLINCYTO [Suspect]
     Active Substance: BLINATUMOMAB
     Indication: ACUTE LYMPHOCYTIC LEUKAEMIA
     Dosage: 9 MCG, (DAY 1 TO 7)
     Route: 042
     Dates: start: 20180417, end: 20180418
  3. VINCRISTINE [Concomitant]
     Active Substance: VINCRISTINE
     Dosage: UNK
     Dates: start: 20180418

REACTIONS (6)
  - Neuropathy peripheral [Recovered/Resolved]
  - Acute lymphocytic leukaemia recurrent [Unknown]
  - Cytokine release syndrome [Recovered/Resolved]
  - Respiratory distress [Unknown]
  - Tumour lysis syndrome [Unknown]
  - Guillain-Barre syndrome [Fatal]

NARRATIVE: CASE EVENT DATE: 2018
